FAERS Safety Report 4438855-7 (Version None)
Quarter: 2004Q3

REPORT INFORMATION
  Report Type: 
  Country: None (occurrence: None)
  Receive Date: 20040901
  Receipt Date: 20040823
  Transmission Date: 20050211
  Serious: Yes (Hospitalization)
  Sender: FDA-Public Use
  Company Number: 200413181FR

PATIENT
  Age: 89 Year
  Sex: Female
  Weight: 90 kg

DRUGS (10)
  1. KETEK [Suspect]
     Indication: BRONCHITIS
     Route: 048
     Dates: start: 20040730, end: 20040731
  2. TOPALGIC [Concomitant]
  3. PREVISCAN [Concomitant]
     Indication: PHLEBITIS
  4. HYPERIUM [Concomitant]
     Indication: CARDIAC FAILURE
  5. HYPERIUM [Concomitant]
     Indication: HYPERTENSION
  6. HYZAAR [Concomitant]
     Indication: CARDIAC FAILURE
  7. HYZAAR [Concomitant]
     Indication: HYPERTENSION
  8. OMEPRAZOLE [Concomitant]
  9. STABLON [Concomitant]
  10. TEMESTA [Concomitant]

REACTIONS (3)
  - CHEILITIS [None]
  - STOMATITIS [None]
  - VULVITIS [None]
